FAERS Safety Report 8348723 (Version 3)
Quarter: 2013Q1

REPORT INFORMATION
  Report Type: Report from Study
  Country: JP (occurrence: JP)
  Receive Date: 20120123
  Receipt Date: 20130325
  Transmission Date: 20140127
  Serious: Yes (Hospitalization)
  Sender: FDA-Public Use
  Company Number: JP-B.I. PHARMACEUTICALS,INC./RIDGEFIELD-2012-BP-00992NB

PATIENT
  Age: 76 Year
  Sex: Female
  Weight: 60.1 kg

DRUGS (15)
  1. MICAMLO COMBINATION [Suspect]
     Indication: HYPERTENSION
     Route: 048
     Dates: start: 20110913, end: 20111205
  2. MICAMLO COMBINATION [Suspect]
     Route: 048
     Dates: start: 20111217, end: 20120324
  3. HUMALOG MIX [Concomitant]
     Dosage: 9 U
     Route: 058
  4. EPALRESTAT [Concomitant]
     Dosage: 150 MG
     Route: 048
  5. TAKEPRON [Concomitant]
     Indication: PROPHYLAXIS
     Dosage: 30 MG
     Route: 048
     Dates: end: 20111205
  6. LIPITOR [Concomitant]
     Dosage: 30 MG
     Route: 048
     Dates: end: 20111205
  7. ALLOZYM [Concomitant]
     Dosage: 100 MG
     Route: 048
     Dates: end: 20111202
  8. MYLAN [Concomitant]
     Dosage: 6 G
     Route: 048
     Dates: end: 20111128
  9. SENNAL [Concomitant]
     Dosage: 24 MG
     Route: 048
  10. FERROMIA [Concomitant]
     Dosage: 50 MG
     Route: 048
     Dates: end: 20111128
  11. LASIX [Concomitant]
     Dosage: 80 MG
     Route: 048
     Dates: end: 20111128
  12. PIROLACTON [Concomitant]
     Dosage: 25 MG
     Route: 048
  13. PLETAAL [Concomitant]
     Dosage: 100 MG
     Route: 048
  14. OLMETEC [Concomitant]
     Indication: HYPERTENSION
     Dosage: 20 MG
     Route: 048
  15. BAYASPIRIN [Concomitant]
     Dosage: 100 MG
     Route: 048

REACTIONS (2)
  - Cardiac failure [Recovered/Resolved]
  - Renal failure [Not Recovered/Not Resolved]
